FAERS Safety Report 12409531 (Version 4)
Quarter: 2016Q4

REPORT INFORMATION
  Report Type: Spontaneous
  Country: BR (occurrence: BR)
  Receive Date: 20160526
  Receipt Date: 20161028
  Transmission Date: 20170207
  Serious: No
  Sender: FDA-Public Use
  Company Number: BR-009507513-1604BRA008546

PATIENT
  Age: 28 Year
  Sex: Female
  Weight: 65 kg

DRUGS (2)
  1. IMPLANON [Suspect]
     Active Substance: ETONOGESTREL
     Indication: CONTRACEPTION
     Dosage: UNK, LEFT ARM
     Route: 059
     Dates: start: 20130413
  2. IMPLANON [Suspect]
     Active Substance: ETONOGESTREL
     Dosage: UNK
     Route: 059

REACTIONS (20)
  - Device difficult to use [Not Recovered/Not Resolved]
  - Complication associated with device [Recovered/Resolved]
  - Tendon rupture [Not Recovered/Not Resolved]
  - Peripheral swelling [Not Recovered/Not Resolved]
  - Hypoaesthesia [Not Recovered/Not Resolved]
  - Myalgia [Not Recovered/Not Resolved]
  - Menstruation normal [Unknown]
  - Migration of implanted drug [Not Recovered/Not Resolved]
  - Implant site pain [Recovered/Resolved]
  - Headache [Not Recovered/Not Resolved]
  - Tooth disorder [Unknown]
  - Pyrexia [Recovered/Resolved]
  - Complication associated with device [Recovered/Resolved]
  - Inflammatory pain [Not Recovered/Not Resolved]
  - Incorrect drug administration duration [Unknown]
  - Implant site pain [Not Recovered/Not Resolved]
  - Pain in extremity [Unknown]
  - Inflammation [Not Recovered/Not Resolved]
  - Implant site pain [Unknown]
  - Implant site fibrosis [Not Recovered/Not Resolved]

NARRATIVE: CASE EVENT DATE: 2013
